FAERS Safety Report 8802173 (Version 2)
Quarter: 2013Q1

REPORT INFORMATION
  Report Type: Spontaneous
  Country: BR (occurrence: BR)
  Receive Date: 20120921
  Receipt Date: 20130226
  Transmission Date: 20140127
  Serious: Yes (Other)
  Sender: FDA-Public Use
  Company Number: PHHY2012BR081220

PATIENT
  Sex: Female
  Weight: 51 kg

DRUGS (8)
  1. TEGRETOL CR [Suspect]
     Indication: TRIGEMINAL NEURALGIA
     Dosage: 4 DF, DAILY
     Route: 048
     Dates: start: 2009
  2. SYNTHROID [Concomitant]
     Indication: THYROID DISORDER
     Dosage: 1 DF, DAILY
     Route: 048
  3. ATENOLOL W/CHLORTALIDONE [Concomitant]
     Indication: BLOOD PRESSURE
     Dosage: 1 DF, (1 TABLET PER DAY)
     Route: 048
     Dates: start: 2003
  4. AMLODIPINE BESILATE W/TELMISARTAN [Concomitant]
     Indication: BLOOD PRESSURE
     Dosage: 1 DF, (1 TABLET PER DAY)
     Route: 048
     Dates: start: 2012
  5. TEBONIN [Concomitant]
     Indication: NERVOUS SYSTEM DISORDER
     Dosage: 160 MG, (2 TABLETS PER DAY)
     Route: 048
  6. LABIRIN [Concomitant]
     Indication: LABYRINTHITIS
     Dosage: 2 DF, DAILY
     Route: 048
     Dates: start: 2010
  7. LIPITOR [Concomitant]
     Indication: BLOOD CHOLESTEROL INCREASED
     Dosage: 1 DF, PRN
     Route: 048
     Dates: start: 2003
  8. SAXAGLIPTIN [Concomitant]
     Indication: DIABETES MELLITUS
     Dosage: 2.5 MG, (1 TABLET A DAY)
     Route: 048

REACTIONS (7)
  - Parkinson^s disease [Not Recovered/Not Resolved]
  - Sinusitis [Recovered/Resolved]
  - Labyrinthitis [Recovered/Resolved]
  - Hearing impaired [Not Recovered/Not Resolved]
  - Osteoporosis [Not Recovered/Not Resolved]
  - Somnolence [Unknown]
  - Pain [Unknown]
